FAERS Safety Report 4630379-7 (Version None)
Quarter: 2005Q2

REPORT INFORMATION
  Report Type: 
  Country: None (occurrence: None)
  Receive Date: 20050408
  Receipt Date: 20050329
  Transmission Date: 20051028
  Serious: Yes (Other)
  Sender: FDA-Public Use
  Company Number: PHEH2005US03750

PATIENT
  Age: 55 Year
  Sex: Female

DRUGS (4)
  1. ZOMETA [Suspect]
     Dosage: 4 MG, QMO
     Route: 042
  2. TAXOTERE [Suspect]
  3. TAXANES [Suspect]
  4. CARBOPLATIN [Concomitant]

REACTIONS (4)
  - DYSPNOEA [None]
  - ERYTHEMA [None]
  - HYPERSENSITIVITY [None]
  - RESPIRATORY DISTRESS [None]
